FAERS Safety Report 11619105 (Version 1)
Quarter: 2015Q4

REPORT INFORMATION
  Report Type: Spontaneous
  Country: US (occurrence: US)
  Receive Date: 20151012
  Receipt Date: 20151012
  Transmission Date: 20160304
  Serious: Yes (Hospitalization)
  Sender: FDA-Public Use
  Company Number: US-GLAXOSMITHKLINE-US2015GSK130010

PATIENT
  Sex: Female

DRUGS (1)
  1. LAMOTRIGINE. [Suspect]
     Active Substance: LAMOTRIGINE
     Indication: BIPOLAR DISORDER
     Dosage: UNK
     Route: 065
     Dates: start: 2008

REACTIONS (6)
  - Agitation [Unknown]
  - Screaming [Unknown]
  - Psychotic disorder [Unknown]
  - Dissociation [Unknown]
  - Product substitution issue [Unknown]
  - Drug ineffective [Unknown]
